FAERS Safety Report 8860429 (Version 1)
Quarter: 2012Q4

REPORT INFORMATION
  Report Type: 
  Country: US (occurrence: US)
  Receive Date: 20121025
  Receipt Date: 20121025
  Transmission Date: 20130627
  Serious: No
  Sender: FDA-Public Use
  Company Number: US-PFIZER INC-2012264040

PATIENT
  Age: 74 Year
  Sex: Female
  Weight: 79.37 kg

DRUGS (1)
  1. ADVIL [Suspect]
     Indication: ARTHRALGIA
     Dosage: 250 mg, as needed
     Route: 048

REACTIONS (1)
  - Abdominal discomfort [Recovered/Resolved]
